FAERS Safety Report 12939763 (Version 1)
Quarter: 2016Q4

REPORT INFORMATION
  Report Type: Spontaneous
  Country: US (occurrence: US)
  Receive Date: 20161115
  Receipt Date: 20161115
  Transmission Date: 20170207
  Serious: No
  Sender: FDA-Public Use
  Company Number: None

PATIENT
  Sex: Male

DRUGS (2)
  1. COUMADIN [Suspect]
     Active Substance: WARFARIN SODIUM
  2. METOPROLOL TARTRATE. [Suspect]
     Active Substance: METOPROLOL TARTRATE

REACTIONS (6)
  - Pulmonary embolism [None]
  - Drug dispensing error [None]
  - Drug dose omission [None]
  - Accidental overdose [None]
  - International normalised ratio increased [None]
  - Wrong drug administered [None]

NARRATIVE: CASE EVENT DATE: 2016
